FAERS Safety Report 13037389 (Version 1)
Quarter: 2016Q4

REPORT INFORMATION
  Report Type: Spontaneous
  Country: US (occurrence: US)
  Receive Date: 20161216
  Receipt Date: 20161216
  Transmission Date: 20170207
  Serious: Yes (Life-Threatening, Hospitalization, Disabling, Other)
  Sender: FDA-Public Use
  Company Number: US-009507513-1612USA003493

PATIENT
  Age: 22 Year
  Sex: Female

DRUGS (1)
  1. NUVARING [Suspect]
     Active Substance: ETHINYL ESTRADIOL\ETONOGESTREL
     Indication: CONTRACEPTION
     Dosage: 1 DF, UNK
     Route: 067

REACTIONS (3)
  - Seizure [Recovering/Resolving]
  - Cerebrovascular accident [Recovering/Resolving]
  - Peripheral paralysis [Recovering/Resolving]

NARRATIVE: CASE EVENT DATE: 2016
